FAERS Safety Report 8141208-1 (Version None)
Quarter: 2012Q1

REPORT INFORMATION
  Report Type: 
  Country: None (occurrence: None)
  Receive Date: 20120216
  Receipt Date: 20120214
  Transmission Date: 20120608
  Serious: Yes (Hospitalization, Other)
  Sender: FDA-Public Use
  Company Number: TR-BAYER-2012-014570

PATIENT
  Age: 43 Year
  Sex: Male

DRUGS (1)
  1. ACETYLSALICYLIC ACID SRT [Suspect]
     Indication: CARDIOVASCULAR EVENT PROPHYLAXIS
     Dosage: 250 MG, BID
     Route: 048

REACTIONS (4)
  - GLAUCOMA [None]
  - RETINAL HAEMORRHAGE [None]
  - HYPHAEMA [None]
  - OPTIC ATROPHY [None]
